FAERS Safety Report 16058801 (Version 3)
Quarter: 2019Q2

REPORT INFORMATION
  Report Type: Spontaneous
  Country: GR (occurrence: GR)
  Receive Date: 20190311
  Receipt Date: 20190402
  Transmission Date: 20190711
  Serious: Yes (Death)
  Sender: FDA-Public Use
  Company Number: GR-PFIZER INC-2019107461

PATIENT
  Age: 48 Year
  Sex: Female

DRUGS (8)
  1. VANCOMYCIN HCL [Suspect]
     Active Substance: VANCOMYCIN HYDROCHLORIDE
     Indication: ACINETOBACTER INFECTION
  2. PIPERACILLIN/TAZOBACTAM [Suspect]
     Active Substance: PIPERACILLIN SODIUM\TAZOBACTAM SODIUM
     Indication: MENINGITIS
     Dosage: UNK
  3. PIPERACILLIN/TAZOBACTAM [Suspect]
     Active Substance: PIPERACILLIN SODIUM\TAZOBACTAM SODIUM
     Indication: ACINETOBACTER INFECTION
  4. GENTAMYCIN [Suspect]
     Active Substance: GENTAMICIN
     Indication: ACINETOBACTER INFECTION
  5. MEROPENEM. [Suspect]
     Active Substance: MEROPENEM
     Indication: MENINGITIS
     Dosage: UNK
  6. MEROPENEM. [Suspect]
     Active Substance: MEROPENEM
     Indication: ACINETOBACTER INFECTION
  7. VANCOMYCIN HCL [Suspect]
     Active Substance: VANCOMYCIN HYDROCHLORIDE
     Indication: MENINGITIS
     Dosage: UNK
  8. GENTAMYCIN [Suspect]
     Active Substance: GENTAMICIN
     Indication: MENINGITIS
     Dosage: UNK

REACTIONS (9)
  - Pyrexia [None]
  - CSF culture positive [None]
  - Haemodynamic instability [None]
  - Acinetobacter infection [None]
  - CSF polymorphonuclear cell count increased [None]
  - Drug resistance [Fatal]
  - CSF protein increased [None]
  - CSF glucose increased [None]
  - Unresponsive to stimuli [None]
